FAERS Safety Report 5259828-0 (Version None)
Quarter: 2007Q1

REPORT INFORMATION
  Report Type: 
  Country: None (occurrence: None)
  Receive Date: 20070309
  Receipt Date: 20070227
  Transmission Date: 20070707
  Serious: Yes (Hospitalization)
  Sender: FDA-Public Use
  Company Number: GBWYE214808DEC05

PATIENT
  Weight: 82 kg

DRUGS (9)
  1. ENBREL [Suspect]
     Indication: RHEUMATOID ARTHRITIS
     Route: 058
     Dates: start: 20041130, end: 20050615
  2. PREDNISOLONE [Concomitant]
     Dosage: UNKNOWN
  3. CELEBREX [Concomitant]
     Dosage: UNKNOWN
  4. LEVOTHYROXINE SODIUM [Concomitant]
     Dosage: UNKNOWN
  5. FOLIC ACID [Concomitant]
     Dosage: UNKNOWN
  6. LOSEC [Concomitant]
     Dosage: UNKNOWN
  7. MYOCRISIN [Concomitant]
     Dosage: UNKNOWN
  8. METHOTREXATE [Concomitant]
     Dosage: UNKNOWN
  9. DIOVAN [Concomitant]
     Dosage: UNKNOWN

REACTIONS (1)
  - TUBERCULOSIS [None]
